FAERS Safety Report 7911607-9 (Version None)
Quarter: 2011Q4

REPORT INFORMATION
  Report Type: 
  Country: None (occurrence: None)
  Receive Date: 20111114
  Receipt Date: 20111103
  Transmission Date: 20120403
  Serious: Yes (Hospitalization)
  Sender: FDA-Public Use
  Company Number: US-JNJFOC-20111101572

PATIENT
  Sex: Female
  Weight: 36.4 kg

DRUGS (12)
  1. METHOTREXATE [Concomitant]
  2. VITAMIN D [Concomitant]
  3. INFLIXIMAB, RECOMBINANT [Suspect]
     Indication: CROHN'S DISEASE
     Route: 042
     Dates: start: 20080202
  4. PEPTAMEN [Concomitant]
  5. FISH OIL [Concomitant]
  6. INFLIXIMAB, RECOMBINANT [Suspect]
     Route: 042
     Dates: start: 20090114
  7. HUMIRA [Concomitant]
  8. IRON [Concomitant]
  9. RIFAXIMIN [Concomitant]
  10. M.V.I. [Concomitant]
  11. PREVACID [Concomitant]
  12. FOLIC ACID [Concomitant]

REACTIONS (1)
  - CROHN'S DISEASE [None]
